FAERS Safety Report 9921708 (Version 2)
Quarter: 2014Q2

REPORT INFORMATION
  Report Type: Spontaneous
  Country: BR (occurrence: BR)
  Receive Date: 20140225
  Receipt Date: 20140606
  Transmission Date: 20141212
  Serious: Yes (Other)
  Sender: FDA-Public Use
  Company Number: BR-ASTRAZENECA-2014SE11256

PATIENT
  Age: 836 Month
  Sex: Female
  Weight: 54 kg

DRUGS (6)
  1. ATACAND [Suspect]
     Indication: HYPERTENSION
     Route: 048
     Dates: start: 2005, end: 2011
  2. ATACAND [Suspect]
     Indication: HYPERTENSION
     Route: 048
     Dates: start: 2011
  3. SIMVASTATIN [Concomitant]
     Indication: BLOOD CHOLESTEROL INCREASED
     Dosage: DAILY
     Route: 048
  4. GINKGO BILOBA [Concomitant]
     Indication: LABYRINTHITIS
     Route: 048
  5. SYNTHROID [Concomitant]
     Indication: THYROIDITIS
     Route: 048
  6. ANOTHER UNSPECIFIED MEDICATION [Concomitant]
     Indication: HYPERTENSION
     Dates: start: 2005

REACTIONS (1)
  - Arrhythmia [Recovered/Resolved]
